FAERS Safety Report 9026083 (Version 1)
Quarter: 2013Q1

REPORT INFORMATION
  Report Type: Spontaneous
  Country: US (occurrence: None)
  Receive Date: 20130107
  Receipt Date: 20130107
  Transmission Date: 20140127
  Serious: Yes (Hospitalization)
  Sender: FDA-Public Use
  Company Number: JPI-P-028801

PATIENT
  Age: 56 Year
  Sex: Female
  Weight: 68.04 kg

DRUGS (7)
  1. XYREM (500 MILLIGRAM/ MILLILITERS, SOLUTION) (SODIUM OXYBATE) [Suspect]
     Dosage: (2.25 GM, 2 IN 1 D)
     Route: 048
     Dates: start: 20110607
  2. AMPHETAMINE, DEXTROAMPHETAMINE MIXED SALTS [Concomitant]
  3. NORTRIPTYLINE [Concomitant]
  4. OLMESARTAN MEDOXOMIL [Concomitant]
  5. METOPROLOL [Concomitant]
  6. BUDESONIDE W/FORMOTEROL FUMARATE [Concomitant]
  7. ASPIRIN [Concomitant]

REACTIONS (10)
  - Nausea [None]
  - Dizziness [None]
  - Feeling hot [None]
  - Anxiety [None]
  - Dyspnoea [None]
  - Oesophagitis [None]
  - Stress at work [None]
  - Incoherent [None]
  - Syncope [None]
  - Convulsion [None]
